FAERS Safety Report 25198767 (Version 1)
Quarter: 2025Q2

REPORT INFORMATION
  Report Type: Spontaneous
  Country: US (occurrence: US)
  Receive Date: 20250415
  Receipt Date: 20250415
  Transmission Date: 20250717
  Serious: No
  Sender: CHIESI
  Company Number: US-CHIESI-2025CHF01246

PATIENT

DRUGS (1)
  1. FILSUVEZ [Suspect]
     Active Substance: BIRCH TRITERPENES
     Indication: Product used for unknown indication
     Route: 061

REACTIONS (2)
  - Wound secretion [Unknown]
  - Product adhesion issue [Not Recovered/Not Resolved]
